FAERS Safety Report 10026204 (Version 4)
Quarter: 2014Q2

REPORT INFORMATION
  Report Type: Spontaneous
  Country: None (occurrence: US)
  Receive Date: 20140320
  Receipt Date: 20140522
  Transmission Date: 20141212
  Serious: Yes (Other)
  Sender: FDA-Public Use
  Company Number: US-ALLERGAN-1316796US

PATIENT
  Age: 71 Year
  Sex: Female

DRUGS (11)
  1. LUMIGAN 0.01% [Suspect]
     Indication: GLAUCOMA
     Dosage: 2 GTT, QHS
     Route: 047
  2. COSOPT [Concomitant]
     Indication: PRODUCT USED FOR UNKNOWN INDICATION
     Dosage: 1 DROP IN EACH EYE, BID
     Route: 047
     Dates: start: 20131101
  3. ATORVASTATIN [Concomitant]
     Dosage: UNK
  4. CLONIDINE [Concomitant]
  5. COD LIVER OIL [Concomitant]
  6. LEVOTHYROXINE [Concomitant]
  7. METFORMIN [Concomitant]
  8. PANTOPRAZOLE [Concomitant]
  9. VITAMIN B 12 [Concomitant]
  10. VITAMIN C WITH ROSE HIPS [Concomitant]
  11. VITAMIN E [Concomitant]

REACTIONS (6)
  - Optic nerve injury [Not Recovered/Not Resolved]
  - Optic nerve cupping [Not Recovered/Not Resolved]
  - Visual field defect [Not Recovered/Not Resolved]
  - Visual acuity reduced [Not Recovered/Not Resolved]
  - Intraocular pressure increased [Not Recovered/Not Resolved]
  - Drug ineffective [Unknown]
